FAERS Safety Report 8058126-X (Version None)
Quarter: 2012Q1

REPORT INFORMATION
  Report Type: 
  Country: None (occurrence: None)
  Receive Date: 20120113
  Receipt Date: 20111230
  Transmission Date: 20120608
  Serious: Yes (Hospitalization)
  Sender: FDA-Public Use
  Company Number: FR-1189601

PATIENT
  Age: 98 Year
  Sex: Female

DRUGS (5)
  1. CALCIUM CARBONATE [Concomitant]
  2. LANSOYL [Concomitant]
  3. DUOTRAV OPHTHALMIC SOLUTION (DUOTRAV) [Suspect]
     Dosage: ONCE DAILY OPHTHALMIC
     Route: 047
     Dates: start: 20090101, end: 20110704
  4. IMOVANE [Concomitant]
  5. IOPIDINE [Suspect]
     Dosage: BID OPHTHALMIC
     Route: 047
     Dates: start: 20090101, end: 20110704

REACTIONS (6)
  - ATRIOVENTRICULAR BLOCK COMPLETE [None]
  - CONDITION AGGRAVATED [None]
  - BRADYCARDIA [None]
  - MALAISE [None]
  - OVERDOSE [None]
  - IMPAIRED SELF-CARE [None]
